FAERS Safety Report 4920534-0 (Version None)
Quarter: 2006Q1

REPORT INFORMATION
  Report Type: 
  Country: None (occurrence: None)
  Receive Date: 20060223
  Receipt Date: 20060214
  Transmission Date: 20060701
  Serious: Yes (Other)
  Sender: FDA-Public Use
  Company Number: US-BRISTOL-MYERS SQUIBB COMPANY-13284203

PATIENT
  Age: 57 Year
  Sex: Male

DRUGS (8)
  1. METHOTREXATE [Suspect]
     Indication: RHEUMATOID ARTHRITIS
     Route: 058
  2. ETANERCEPT [Suspect]
     Indication: RHEUMATOID ARTHRITIS
     Route: 058
     Dates: start: 19990601
  3. PREDNISONE [Concomitant]
  4. LANSOPRAZOLE [Concomitant]
  5. FOLATE [Concomitant]
  6. SULINDAC [Concomitant]
  7. CALCIUM CARBONATE [Concomitant]
  8. ALBUTEROL [Concomitant]
     Route: 055

REACTIONS (1)
  - ATRIAL FIBRILLATION [None]
